FAERS Safety Report 9067227 (Version 1)
Quarter: 2013Q1

REPORT INFORMATION
  Report Type: Other
  Country: DK (occurrence: DK)
  Receive Date: 20130214
  Receipt Date: 20130214
  Transmission Date: 20140127
  Serious: Yes (Hospitalization)
  Sender: FDA-Public Use
  Company Number: DK-NICOBRDEVP-2013-01979

PATIENT
  Sex: Female

DRUGS (2)
  1. QUETIAPINE (UNKNOWN) [Suspect]
     Indication: DEPRESSION
     Dosage: 300 MG, DAILY
     Route: 048
  2. LAMOTRIGINE (UNKNOWN) [Suspect]
     Indication: DEPRESSION
     Dosage: 25 MG, UNKNOWN
     Route: 065
     Dates: start: 20121106, end: 20121120

REACTIONS (1)
  - Thrombosis [Unknown]
